FAERS Safety Report 16168938 (Version 2)
Quarter: 2019Q2

REPORT INFORMATION
  Report Type: Spontaneous
  Country: CN (occurrence: CN)
  Receive Date: 20190408
  Receipt Date: 20190528
  Transmission Date: 20190711
  Serious: Yes (Hospitalization, Other)
  Sender: FDA-Public Use
  Company Number: CN-ROCHE-2295008

PATIENT
  Age: 51 Year
  Sex: Male

DRUGS (12)
  1. VFEND [Concomitant]
     Active Substance: VORICONAZOLE
     Indication: LUNG INFECTION
     Route: 065
     Dates: start: 2015, end: 201512
  2. DIFLUCAN [Concomitant]
     Active Substance: FLUCONAZOLE
     Indication: ANTI-INFECTIVE THERAPY
     Route: 065
     Dates: start: 20160622
  3. SULFAMETHOXAZOLE [Concomitant]
     Active Substance: SULFAMETHOXAZOLE
     Indication: ANTI-INFECTIVE THERAPY
     Route: 065
     Dates: start: 2016
  4. CICLOSPORIN A [Concomitant]
     Active Substance: CYCLOSPORINE
     Route: 065
     Dates: start: 2016
  5. MYCAMINE [Concomitant]
     Active Substance: MICAFUNGIN SODIUM
     Indication: ANTI-INFECTIVE THERAPY
     Route: 065
     Dates: start: 20160622
  6. SOLU-MEDROL [Concomitant]
     Active Substance: METHYLPREDNISOLONE SODIUM SUCCINATE
     Indication: GRAFT VERSUS HOST DISEASE IN GASTROINTESTINAL TRACT
     Route: 065
     Dates: start: 2015, end: 2015
  7. MEROPENEM. [Concomitant]
     Active Substance: MEROPENEM
     Indication: LUNG INFECTION
     Route: 065
     Dates: start: 2015, end: 201512
  8. GANCICLOVIR. [Suspect]
     Active Substance: GANCICLOVIR
     Indication: ANTI-INFECTIVE THERAPY
     Route: 065
     Dates: start: 20160622
  9. SOLU-MEDROL [Concomitant]
     Active Substance: METHYLPREDNISOLONE SODIUM SUCCINATE
     Route: 065
     Dates: start: 2016
  10. MEROPENEM. [Concomitant]
     Active Substance: MEROPENEM
     Route: 065
     Dates: start: 20160622, end: 2016
  11. CICLOSPORIN A [Concomitant]
     Active Substance: CYCLOSPORINE
     Indication: LUNG INFECTION
     Route: 065
     Dates: start: 2015, end: 201512
  12. GANCICLOVIR. [Suspect]
     Active Substance: GANCICLOVIR
     Indication: CYTOMEGALOVIRUS INFECTION
     Route: 065
     Dates: start: 20150423, end: 2015

REACTIONS (4)
  - Chronic graft versus host disease [Recovering/Resolving]
  - Lung infection [Recovering/Resolving]
  - Graft versus host disease in gastrointestinal tract [Unknown]
  - Pneumonitis [Unknown]
